FAERS Safety Report 8134271-5 (Version None)
Quarter: 2012Q1

REPORT INFORMATION
  Report Type: 
  Country: None (occurrence: None)
  Receive Date: 20120209
  Receipt Date: 20120131
  Transmission Date: 20120608
  Serious: Yes (Hospitalization, Other)
  Sender: FDA-Public Use
  Company Number: 2012MA001359

PATIENT
  Age: 64 Year
  Sex: Female
  Weight: 88.905 kg

DRUGS (22)
  1. HYDRALAZINE HCL [Concomitant]
  2. PREMARIN [Concomitant]
  3. LEVAQUIN [Concomitant]
  4. CODEINE SULFATE [Concomitant]
  5. FUROSEMIDE [Concomitant]
  6. FLUOXETINE [Concomitant]
  7. COUMADIN [Concomitant]
  8. ADVAIR DISKUS 100/50 [Concomitant]
  9. ALBUTEROL [Concomitant]
  10. DIGOXIN [Suspect]
     Indication: CARDIAC DISORDER
     Dosage: 0.25 MG;QD;PO
     Route: 048
     Dates: start: 19880101, end: 20080729
  11. GEMFIBROZIL [Concomitant]
  12. HUMALOG [Concomitant]
  13. PLAVIX [Concomitant]
  14. PAXIL [Concomitant]
  15. PROMETHAZINE [Concomitant]
  16. RANITIDINE [Concomitant]
  17. KLOR-CON [Concomitant]
  18. SINGULAIR [Concomitant]
  19. LISINOPRIL [Concomitant]
  20. ALLOPURINOL [Concomitant]
  21. COREG [Concomitant]
  22. IRON [Concomitant]

REACTIONS (38)
  - ABDOMINAL MASS [None]
  - SYNCOPE [None]
  - HYPERTENSION [None]
  - CHRONIC OBSTRUCTIVE PULMONARY DISEASE [None]
  - AORTIC VALVE INCOMPETENCE [None]
  - OEDEMA PERIPHERAL [None]
  - ECONOMIC PROBLEM [None]
  - HYPERLIPIDAEMIA [None]
  - ANAEMIA [None]
  - HYPERURICAEMIA [None]
  - HEART RATE INCREASED [None]
  - BLOOD PRESSURE SYSTOLIC INCREASED [None]
  - LEFT VENTRICULAR HYPERTROPHY [None]
  - FATIGUE [None]
  - CONTUSION [None]
  - EJECTION FRACTION DECREASED [None]
  - MITRAL VALVE INCOMPETENCE [None]
  - ABDOMINAL DISTENSION [None]
  - DIZZINESS [None]
  - BRADYCARDIA [None]
  - BRONCHOGENIC CYST [None]
  - HEART RATE IRREGULAR [None]
  - LEFT VENTRICULAR DYSFUNCTION [None]
  - TOXICITY TO VARIOUS AGENTS [None]
  - UNEVALUABLE EVENT [None]
  - ABDOMINAL DISCOMFORT [None]
  - TRICUSPID VALVE INCOMPETENCE [None]
  - MULTIPLE INJURIES [None]
  - CONSTIPATION [None]
  - ATRIAL FIBRILLATION [None]
  - NAUSEA [None]
  - HEPATIC CYST [None]
  - RENAL FAILURE [None]
  - DIABETES MELLITUS [None]
  - RENAL FUNCTION TEST ABNORMAL [None]
  - VOMITING [None]
  - SOMNOLENCE [None]
  - CARDIOMEGALY [None]
